FAERS Safety Report 24895854 (Version 4)
Quarter: 2025Q1

REPORT INFORMATION
  Report Type: Report from Study
  Country: AR (occurrence: AR)
  Receive Date: 20250128
  Receipt Date: 20250305
  Transmission Date: 20250408
  Serious: Yes (Death, Hospitalization, Other)
  Sender: TAKEDA
  Company Number: AR-TAKEDA-2025TUS008217

PATIENT
  Sex: Female
  Weight: 48 kg

DRUGS (7)
  1. MARIBAVIR [Suspect]
     Active Substance: MARIBAVIR
     Indication: Cytomegalovirus infection
     Dosage: 800 MILLIGRAM, QD
     Dates: start: 20241216, end: 20241229
  2. RUXOLITINIB [Concomitant]
     Active Substance: RUXOLITINIB
     Indication: Immunosuppressant drug therapy
     Dosage: 10 MILLIGRAM, Q12H
  3. RUXOLITINIB [Concomitant]
     Active Substance: RUXOLITINIB
     Indication: Graft versus host disease
  4. MEPREDNISONE [Concomitant]
     Active Substance: MEPREDNISONE
     Indication: Immunosuppressant drug level
     Dosage: 40 MILLIGRAM, QD
  5. MEPREDNISONE [Concomitant]
     Active Substance: MEPREDNISONE
     Indication: Graft versus host disease
  6. SULFAMETHOXAZOLE\TRIMETHOPRIM [Concomitant]
     Active Substance: SULFAMETHOXAZOLE\TRIMETHOPRIM
     Indication: Prophylaxis
  7. IMIPENEM [Concomitant]
     Active Substance: IMIPENEM
     Indication: Sepsis

REACTIONS (1)
  - Pulmonary fibrosis [Fatal]
